FAERS Safety Report 10469842 (Version 1)
Quarter: 2014Q3

REPORT INFORMATION
  Report Type: Spontaneous
  Country: TW (occurrence: TW)
  Receive Date: 20140923
  Receipt Date: 20140923
  Transmission Date: 20150326
  Serious: Yes (Hospitalization)
  Sender: FDA-Public Use
  Company Number: TW-JNJFOC-20140913605

PATIENT
  Sex: Female
  Weight: 57 kg

DRUGS (3)
  1. INVEGA [Suspect]
     Active Substance: PALIPERIDONE
     Indication: SCHIZOPHRENIA, PARANOID TYPE
     Route: 048
  2. INVEGA [Suspect]
     Active Substance: PALIPERIDONE
     Indication: SCHIZOPHRENIA, PARANOID TYPE
     Route: 048
  3. FLURAZIN [Suspect]
     Active Substance: TRIFLUOPERAZINE HYDROCHLORIDE
     Indication: PRODUCT USED FOR UNKNOWN INDICATION
     Route: 065

REACTIONS (15)
  - Soliloquy [Unknown]
  - Restlessness [None]
  - Depressed mood [Unknown]
  - Treatment noncompliance [Unknown]
  - Aggression [None]
  - Extrapyramidal disorder [Unknown]
  - Agitation [Unknown]
  - Decreased appetite [Unknown]
  - Akathisia [Unknown]
  - Anhedonia [None]
  - Insomnia [Unknown]
  - Irritability [Unknown]
  - Initial insomnia [None]
  - Weight increased [Unknown]
  - Thinking abnormal [Unknown]
